FAERS Safety Report 7966860-2 (Version None)
Quarter: 2011Q4

REPORT INFORMATION
  Report Type: 
  Country: None (occurrence: None)
  Receive Date: 20111209
  Receipt Date: 20111206
  Transmission Date: 20120403
  Serious: No
  Sender: FDA-Public Use
  Company Number: US-PFIZER INC-2011298017

PATIENT
  Sex: Female
  Weight: 86.1 kg

DRUGS (2)
  1. PREMPRO [Suspect]
     Indication: MENOPAUSE
     Dosage: UNK, 1X/DAY
     Route: 048
     Dates: start: 20111202
  2. BENICAR [Concomitant]
     Indication: HYPERTENSION
     Dosage: UNK

REACTIONS (4)
  - BURNING SENSATION [None]
  - PARAESTHESIA ORAL [None]
  - LIP DRY [None]
  - LIP SWELLING [None]
